FAERS Safety Report 4585776-5 (Version None)
Quarter: 2005Q1

REPORT INFORMATION
  Report Type: 
  Country: None (occurrence: None)
  Receive Date: 20050128
  Receipt Date: 20050128
  Transmission Date: 20050727
  Serious: Yes (Other)
  Sender: FDA-Public Use
  Company Number: None

PATIENT
  Age: 58 Year
  Sex: Male
  Weight: 107 kg

DRUGS (9)
  1. CETUXIMAB-ERBITUX [Suspect]
     Indication: COLON CANCER
     Dosage: 920 MG IV OVER 2 HRS (RESEVERED APPROX 100 ML)
     Route: 042
     Dates: start: 20041203
  2. LOMOTIL [Concomitant]
  3. ATENOLOL [Concomitant]
  4. LIPITOR [Concomitant]
  5. PROZAC [Concomitant]
  6. FOSINOPRIL [Concomitant]
  7. HYDROCHLOROTHIAZIDE [Concomitant]
  8. PROMETHAZINE [Concomitant]
  9. SELMA [Concomitant]

REACTIONS (5)
  - ANAPHYLACTIC REACTION [None]
  - DYSPNOEA [None]
  - HYPERHIDROSIS [None]
  - OXYGEN SATURATION DECREASED [None]
  - TACHYCARDIA [None]
